FAERS Safety Report 12282890 (Version 1)
Quarter: 2016Q2

REPORT INFORMATION
  Report Type: Spontaneous
  Country: AU (occurrence: AU)
  Receive Date: 20160419
  Receipt Date: 20160419
  Transmission Date: 20160815
  Serious: Yes (Other)
  Sender: FDA-Public Use
  Company Number: AU-MYLANLABS-2016M1016218

PATIENT

DRUGS (8)
  1. VASOPRESSIN. [Concomitant]
     Active Substance: VASOPRESSIN
     Dosage: 1 UNIT OF VASOPRESSIN IN 11 OF 0.9% SALINE
     Route: 042
  2. LEVOTHYROXINE SODIUM. [Concomitant]
     Active Substance: LEVOTHYROXINE SODIUM
     Route: 065
  3. ETOPOSIDE. [Concomitant]
     Active Substance: ETOPOSIDE
     Indication: PRIMITIVE NEUROECTODERMAL TUMOUR
     Dosage: ON DAY 1, 2 AND 3 OF CHEMOTHERAPY CYCLE
     Route: 065
  4. DESMOPRESSIN [Concomitant]
     Active Substance: DESMOPRESSIN
     Route: 048
  5. CYCLOPHOSPHAMIDE. [Concomitant]
     Active Substance: CYCLOPHOSPHAMIDE
     Indication: PRIMITIVE NEUROECTODERMAL TUMOUR
     Dosage: ON DAY 1 AND 2 OF CHEMOTHERAPY CYCLE
     Route: 065
  6. CISPLATIN. [Suspect]
     Active Substance: CISPLATIN
     Indication: PRIMITIVE NEUROECTODERMAL TUMOUR
     Dosage: ON DAY 3 OF CHEMOTHERAPY CYCLE
     Route: 065
  7. HYDROCORTISONE. [Concomitant]
     Active Substance: HYDROCORTISONE
     Route: 065
  8. VINCRISTINE [Concomitant]
     Active Substance: VINCRISTINE
     Indication: PRIMITIVE NEUROECTODERMAL TUMOUR
     Dosage: ON DAY 1 OF CHEMOTHERAPY CYCLE
     Route: 065

REACTIONS (1)
  - Renal salt-wasting syndrome [Recovered/Resolved]
